FAERS Safety Report 7791949-0 (Version None)
Quarter: 2011Q4

REPORT INFORMATION
  Report Type: 
  Country: None (occurrence: None)
  Receive Date: 20111003
  Receipt Date: 20110926
  Transmission Date: 20120403
  Serious: Yes (Other)
  Sender: FDA-Public Use
  Company Number: BR-PFIZER INC-2011228781

PATIENT
  Sex: Female

DRUGS (1)
  1. CELEBREX [Suspect]
     Indication: ARTHRALGIA
     Dosage: ONE CAPSULE OF  200 MG, EVERY 12 HOURS
     Route: 048
     Dates: start: 20110923

REACTIONS (2)
  - APHONIA [None]
  - FLATULENCE [None]
